FAERS Safety Report 12537594 (Version 2)
Quarter: 2016Q3

REPORT INFORMATION
  Report Type: Report from Study
  Country: AU (occurrence: AU)
  Receive Date: 20160707
  Receipt Date: 20160731
  Transmission Date: 20161109
  Serious: Yes (Death)
  Sender: FDA-Public Use
  Company Number: AU-ALLERGAN-1662038US

PATIENT
  Age: 68 Year
  Sex: Male

DRUGS (10)
  1. DANTROLENE [Concomitant]
     Active Substance: DANTROLENE
     Indication: BRAIN INJURY
     Dosage: 60 MG, TID
     Dates: start: 2001
  2. PANAMAX [Concomitant]
     Active Substance: ACETAMINOPHEN
     Indication: PRODUCT USED FOR UNKNOWN INDICATION
     Dosage: UNK UNK, QID PRN
  3. BOTULINUM TOXIN TYPE A - GENERAL (9060X) [Suspect]
     Active Substance: BOTULINUM TOXIN TYPE A
     Indication: MUSCLE SPASTICITY
     Dosage: 400 UNITS, SINGLE
     Route: 030
     Dates: start: 20160628, end: 20160628
  4. BOTULINUM TOXIN TYPE A - GENERAL (9060X) [Suspect]
     Active Substance: BOTULINUM TOXIN TYPE A
     Dosage: UNK
     Route: 030
     Dates: start: 2002, end: 2002
  5. THIAMINE. [Concomitant]
     Active Substance: THIAMINE
     Indication: PRODUCT USED FOR UNKNOWN INDICATION
     Dosage: UNK UNK, QD
  6. SODIBIC [Concomitant]
     Indication: PRODUCT USED FOR UNKNOWN INDICATION
     Dosage: 10 ML, QID PRN
  7. MADOPAR [Concomitant]
     Active Substance: BENSERAZIDE HYDROCHLORIDE\LEVODOPA
     Indication: BRAIN INJURY
     Dosage: 62.5 MG, BID
     Dates: start: 2001
  8. SALBUTAMOL [Concomitant]
     Active Substance: ALBUTEROL
     Indication: PRODUCT USED FOR UNKNOWN INDICATION
     Dosage: 5 MG, QID PRN
  9. OMEPRAZOLE. [Concomitant]
     Active Substance: OMEPRAZOLE
     Indication: BRAIN INJURY
     Dosage: 20 MG, BID
     Dates: start: 2001
  10. DOMPERIDONE [Concomitant]
     Active Substance: DOMPERIDONE
     Indication: BRAIN INJURY
     Dosage: 10 MG, WITH MEALS
     Dates: start: 2001

REACTIONS (1)
  - Death [Fatal]

NARRATIVE: CASE EVENT DATE: 20160630
